FAERS Safety Report 7395247-9 (Version None)
Quarter: 2011Q1

REPORT INFORMATION
  Report Type: 
  Country: None (occurrence: None)
  Receive Date: 20110331
  Receipt Date: 20110331
  Transmission Date: 20110831
  Serious: No
  Sender: FDA-Public Use
  Company Number: None

PATIENT
  Age: 68 Year
  Sex: Male

DRUGS (1)
  1. ZOSYN [Suspect]
     Dosage: 3.375MG IV PIGGYBACK
     Route: 042
     Dates: start: 20110322, end: 20110322

REACTIONS (1)
  - URTICARIA [None]
